FAERS Safety Report 7101890-4 (Version None)
Quarter: 2010Q4

REPORT INFORMATION
  Report Type: 
  Country: None (occurrence: None)
  Receive Date: 20101108
  Receipt Date: 20020419
  Transmission Date: 20110411
  Serious: Yes (Death, Hospitalization, Other)
  Sender: FDA-Public Use
  Company Number: THQ2010A03381

PATIENT
  Age: 75 Year
  Sex: Female

DRUGS (14)
  1. LANSOPRAZOLE [Suspect]
     Indication: DUODENAL ULCER
     Dates: start: 20020301
  2. ACETAMINOPHEN W/ CODEINE [Suspect]
     Indication: RHEUMATOID ARTHRITIS
     Dates: start: 20020301
  3. ARAVA [Suspect]
     Indication: RHEUMATOID ARTHRITIS
     Dosage: 20 MG (1 D), PER ORAL
     Route: 048
     Dates: start: 20020301
  4. DILTIAZEM HYDROCHLORIDE [Suspect]
     Indication: HYPERTENSION
     Dates: end: 20020301
  5. ASPIRIN [Suspect]
     Indication: PAIN
     Dates: start: 20020301
  6. BUDESONIDE [Suspect]
     Indication: ASTHMA
     Dates: start: 20020301
  7. LISINOPRIL [Suspect]
     Indication: HYPERTENSION
     Dates: start: 20020301
  8. GLYCERYL TRINITRATE [Suspect]
     Indication: PAIN
     Dosage: PER ORAL
     Route: 048
     Dates: start: 20020301
  9. ATORVASTATIN CALCIUM [Suspect]
     Indication: HYPERCHOLESTEROLAEMIA
     Dates: start: 19990101
  10. QUININE SULFATE [Suspect]
     Indication: MUSCLE SPASMS
  11. PROPOFOL [Suspect]
     Indication: ANAESTHESIA
     Dosage: INTRAVENOUS
     Route: 042
     Dates: start: 20020301, end: 20020301
  12. MIDAZOLAM HCL [Suspect]
     Indication: ANAESTHESIA
     Dosage: INTRAVENOUS
     Route: 042
     Dates: start: 20020301, end: 20020301
  13. FENTANYL CITRATE [Suspect]
     Indication: ANAESTHESIA
     Dosage: INTRAVENOUS
     Route: 042
     Dates: start: 20020301, end: 20020301
  14. PANCURONIUM BROMIDE [Suspect]
     Indication: MUSCLE RELAXANT THERAPY
     Dates: start: 20020301, end: 20020301

REACTIONS (19)
  - ABDOMINAL PAIN UPPER [None]
  - ABDOMINAL RIGIDITY [None]
  - ACUTE HEPATIC FAILURE [None]
  - COAGULOPATHY [None]
  - CORONARY ARTERY DISEASE [None]
  - DIVERTICULITIS [None]
  - DUODENAL ULCER [None]
  - GASTRIC ULCER [None]
  - GASTROINTESTINAL HAEMORRHAGE [None]
  - HEPATIC ISCHAEMIA [None]
  - HEPATORENAL SYNDROME [None]
  - HYPOVOLAEMIA [None]
  - INTESTINAL ISCHAEMIA [None]
  - LABILE BLOOD PRESSURE [None]
  - MULTI-ORGAN FAILURE [None]
  - POST PROCEDURAL COMPLICATION [None]
  - RENAL FAILURE [None]
  - RENAL ISCHAEMIA [None]
  - RENAL TUBULAR NECROSIS [None]
